FAERS Safety Report 22045300 (Version 1)
Quarter: 2023Q1

REPORT INFORMATION
  Report Type: Spontaneous
  Country: US (occurrence: None)
  Receive Date: 20230227
  Receipt Date: 20230227
  Transmission Date: 20230418
  Serious: Yes (Other)
  Sender: FDA-Public Use
  Company Number: None

PATIENT
  Age: 17 Year
  Sex: Female
  Weight: 56.25 kg

DRUGS (10)
  1. MICONAZOLE 1 [Suspect]
     Active Substance: MICONAZOLE NITRATE
     Indication: Fungal infection
     Dosage: OTHER QUANTITY : 1 2% NITRATE CREAM;?FREQUENCY : DAILY;?
     Route: 067
     Dates: start: 20230227, end: 20230227
  2. ABILIFY [Concomitant]
     Active Substance: ARIPIPRAZOLE
  3. LAMOTRIGINE [Concomitant]
     Active Substance: LAMOTRIGINE
  4. HYDROXYZINE [Concomitant]
     Active Substance: HYDROXYZINE HYDROCHLORIDE
  5. PRAZOSIN [Concomitant]
     Active Substance: PRAZOSIN
  6. lorazepam prn [Concomitant]
  7. rescue inhaler prn [Concomitant]
  8. LORATADINE [Concomitant]
     Active Substance: LORATADINE
  9. benadryl prn [Concomitant]
  10. TYLENOL [Concomitant]
     Active Substance: ACETAMINOPHEN

REACTIONS (2)
  - Vulvovaginal burning sensation [None]
  - Pain [None]

NARRATIVE: CASE EVENT DATE: 20230227
